APPROVED DRUG PRODUCT: EPIRUBICIN HYDROCHLORIDE
Active Ingredient: EPIRUBICIN HYDROCHLORIDE
Strength: 50MG/25ML (2MG/ML)
Dosage Form/Route: INJECTABLE;INJECTION
Application: A090075 | Product #001
Applicant: HISUN PHARMACEUTICAL (HANGZHOU) CO LTD
Approved: Mar 25, 2010 | RLD: No | RS: No | Type: DISCN